FAERS Safety Report 9142717 (Version 2)
Quarter: 2013Q1

REPORT INFORMATION
  Report Type: Spontaneous
  Country: DE (occurrence: DE)
  Receive Date: 20130306
  Receipt Date: 20130321
  Transmission Date: 20140127
  Serious: Yes (Other)
  Sender: FDA-Public Use
  Company Number: DE-BRISTOL-MYERS SQUIBB COMPANY-17425257

PATIENT
  Age: 33 Year
  Sex: Male

DRUGS (15)
  1. NULOJIX [Suspect]
     Indication: RENAL TRANSPLANT
     Dosage: 750 MG 22DEC12; 750 MG 31DEC12
     Route: 042
     Dates: start: 20121218, end: 20130124
  2. MYCOPHENOLATE SODIUM [Suspect]
     Dosage: INTERRUPTED DEC12 RESTART 21DEC12 720MG, INTERPT 04JAN13
  3. VALGANCICLOVIR [Suspect]
  4. PANTOZOL [Suspect]
  5. RANITIDINE [Concomitant]
  6. METHYLPREDNISOLONE [Concomitant]
     Dosage: 21DEC12-01JAN13 8MG; 02JAN13 16MG; 14JAN13-17JAN13 8MG; 18JAN13-290JAN13 20MG, 30JAN13-01FEB13 500MG
  7. CLONIDINE [Concomitant]
  8. CARVEDILOL [Concomitant]
  9. AMLODIPINE [Concomitant]
  10. DOXAZOSIN MESILATE [Concomitant]
  11. FUROSEMIDE [Concomitant]
  12. HEPARIN SODIUM [Concomitant]
     Indication: THROMBOSIS PROPHYLAXIS
  13. MEROPENEM [Concomitant]
  14. CIPROFLOXACIN [Concomitant]
  15. VANCOMYCIN [Concomitant]

REACTIONS (6)
  - Renal graft loss [Unknown]
  - Kidney transplant rejection [Unknown]
  - Leukopenia [Recovered/Resolved]
  - Cytomegalovirus infection [Unknown]
  - BK virus infection [Unknown]
  - Pulmonary embolism [Unknown]
